FAERS Safety Report 12563565 (Version 2)
Quarter: 2017Q1

REPORT INFORMATION
  Report Type: Spontaneous
  Country: ES (occurrence: ES)
  Receive Date: 20160715
  Receipt Date: 20170210
  Transmission Date: 20170428
  Serious: Yes (Hospitalization)
  Sender: FDA-Public Use
  Company Number: ES-ASTRAZENECA-2016SE75532

PATIENT
  Age: 65 Year
  Sex: Male
  Weight: 90.3 kg

DRUGS (8)
  1. ADIRO [Concomitant]
     Active Substance: ASPIRIN
     Dosage: 100, 1 DF DAILY
  2. INSULIN HUMALOG MIX 50 [Concomitant]
     Dates: start: 2006
  3. INSULIN HUMALOG MIX 25 [Concomitant]
     Dosage: 2 DAILY
     Dates: start: 2006
  4. PRAVASTATIN. [Concomitant]
     Active Substance: PRAVASTATIN
     Dosage: 1 DF DAILY
     Route: 048
  5. AMLODIPINE [Concomitant]
     Active Substance: AMLODIPINE BESYLATE
     Dosage: 5, 2 DF DAILY
  6. XIGDUO XR [Suspect]
     Active Substance: DAPAGLIFLOZIN PROPANEDIOL\METFORMIN HYDROCHLORIDE
     Indication: DIABETES MELLITUS
     Route: 048
     Dates: start: 20160503, end: 20160602
  7. VALSARTAN. [Concomitant]
     Active Substance: VALSARTAN
     Dosage: 320/25 1 DF DAILY
     Route: 048
  8. OMEPRAZOL [Concomitant]
     Active Substance: OMEPRAZOLE
     Dosage: 20, 1 DF DAILY

REACTIONS (2)
  - Phimosis [Unknown]
  - Balanoposthitis [Unknown]

NARRATIVE: CASE EVENT DATE: 20160601
